FAERS Safety Report 15901294 (Version 1)
Quarter: 2019Q1

REPORT INFORMATION
  Report Type: Spontaneous
  Country: US (occurrence: US)
  Receive Date: 20190201
  Receipt Date: 20190201
  Transmission Date: 20190417
  Serious: Yes (Hospitalization)
  Sender: FDA-Public Use
  Company Number: None

PATIENT
  Age: 78 Year
  Sex: Male

DRUGS (14)
  1. GABAPENTIN. [Concomitant]
     Active Substance: GABAPENTIN
  2. METOPROL SUC [Concomitant]
  3. OMEPRAZOLE. [Concomitant]
     Active Substance: OMEPRAZOLE
  4. PREDNISONE. [Concomitant]
     Active Substance: PREDNISONE
  5. LANTUS [Concomitant]
     Active Substance: INSULIN GLARGINE
  6. SERTRALINE [Concomitant]
     Active Substance: SERTRALINE HYDROCHLORIDE
  7. SIMVASTATIN. [Concomitant]
     Active Substance: SIMVASTATIN
  8. ABIRATERONE ACETATE. [Suspect]
     Active Substance: ABIRATERONE ACETATE
     Indication: PROSTATE CANCER
     Route: 048
     Dates: start: 20190103
  9. BENZONATATE. [Concomitant]
     Active Substance: BENZONATATE
  10. TAMSULOSIN [Concomitant]
     Active Substance: TAMSULOSIN
  11. HUMALOG [Concomitant]
     Active Substance: INSULIN LISPRO
  12. ONDANSETRON [Concomitant]
     Active Substance: ONDANSETRON
  13. AMLODIPINE [Concomitant]
     Active Substance: AMLODIPINE BESYLATE
  14. LOSARTAN POT [Concomitant]
     Active Substance: LOSARTAN POTASSIUM

REACTIONS (1)
  - Malaise [None]

NARRATIVE: CASE EVENT DATE: 20190131
